FAERS Safety Report 17853951 (Version 3)
Quarter: 2020Q2

REPORT INFORMATION
  Report Type: Spontaneous
  Country: US (occurrence: US)
  Receive Date: 20200603
  Receipt Date: 20200625
  Transmission Date: 20200714
  Serious: No
  Sender: FDA-Public Use
  Company Number: US-BLUEPRINT MEDICINES CORPORATION-SP-US-2020-000476

PATIENT
  Age: 72 Year
  Sex: Male

DRUGS (2)
  1. AYVAKIT [Suspect]
     Active Substance: AVAPRITINIB
     Indication: MALIGNANT CONNECTIVE TISSUE NEOPLASM
     Route: 048
     Dates: start: 20191231
  2. AYVAKIT [Suspect]
     Active Substance: AVAPRITINIB
     Indication: SOFT TISSUE SARCOMA
     Route: 048
     Dates: start: 20200403

REACTIONS (9)
  - Ocular hyperaemia [Not Recovered/Not Resolved]
  - Rash [Recovering/Resolving]
  - Prescribed underdose [Not Recovered/Not Resolved]
  - Blood bilirubin increased [Unknown]
  - Fatigue [Recovering/Resolving]
  - Blood triglycerides increased [Unknown]
  - Periorbital swelling [Recovering/Resolving]
  - Lacrimation increased [Unknown]
  - Off label use [Not Recovered/Not Resolved]

NARRATIVE: CASE EVENT DATE: 20200228
